FAERS Safety Report 14732585 (Version 1)
Quarter: 2018Q2

REPORT INFORMATION
  Report Type: Other
  Country: IL (occurrence: IL)
  Receive Date: 20180409
  Receipt Date: 20180409
  Transmission Date: 20180711
  Serious: Yes (Other)
  Sender: FDA-Public Use
  Company Number: IL-ACTELION-A-CH2018-169939

PATIENT
  Sex: Female

DRUGS (6)
  1. BOSENTAN. [Suspect]
     Active Substance: BOSENTAN
     Indication: PULMONARY ARTERIAL HYPERTENSION
     Route: 048
  2. EPOPROSTENOL. [Suspect]
     Active Substance: EPOPROSTENOL
     Indication: PULMONARY ARTERIAL HYPERTENSION
     Route: 042
  3. SILDENAFIL. [Concomitant]
     Active Substance: SILDENAFIL
  4. PREDNISONE. [Concomitant]
     Active Substance: PREDNISONE
     Dosage: 2 MG/KG, OD
     Route: 048
  5. OXYGEN. [Concomitant]
     Active Substance: OXYGEN
  6. NITRIC OXIDE. [Concomitant]
     Active Substance: NITRIC OXIDE

REACTIONS (8)
  - Concomitant disease aggravated [Recovering/Resolving]
  - Dyspnoea [Unknown]
  - Failure to thrive [Recovering/Resolving]
  - Congenital pancreatic anomaly [Unknown]
  - Pancreatitis [Unknown]
  - Neonatal respiratory distress [Recovering/Resolving]
  - Developmental delay [Recovering/Resolving]
  - Oxygen saturation decreased [Recovering/Resolving]
